FAERS Safety Report 16035865 (Version 2)
Quarter: 2019Q2

REPORT INFORMATION
  Report Type: Spontaneous
  Country: US (occurrence: US)
  Receive Date: 20190305
  Receipt Date: 20190625
  Transmission Date: 20190711
  Serious: Yes (Hospitalization, Other)
  Sender: FDA-Public Use
  Company Number: US-PFIZER INC-2019091422

PATIENT
  Age: 58 Year
  Sex: Male
  Weight: 109 kg

DRUGS (2)
  1. LYRICA [Suspect]
     Active Substance: PREGABALIN
     Indication: NERVE INJURY
     Dosage: 150 MG, 2X/DAY (ONE IN THE MORNING, ONE AT NIGHT AND BY 10-11 AT NIGHT)
  2. LYRICA [Suspect]
     Active Substance: PREGABALIN
     Dosage: 150 MG, 1X/DAY (IN THE MORNING )

REACTIONS (6)
  - Pyrexia [Unknown]
  - Gastrointestinal pain [Unknown]
  - Withdrawal syndrome [Unknown]
  - Intentional product use issue [Recovered/Resolved]
  - Nephrolithiasis [Recovered/Resolved]
  - Retching [Unknown]

NARRATIVE: CASE EVENT DATE: 201902
